FAERS Safety Report 8551723-4 (Version None)
Quarter: 2012Q3

REPORT INFORMATION
  Report Type: 
  Country: None (occurrence: None)
  Receive Date: 20120730
  Receipt Date: 20120720
  Transmission Date: 20120928
  Serious: Yes (Death)
  Sender: FDA-Public Use
  Company Number: US-COVIDIEN/TYCO HEALTHCARE/MALLINCKRODT-T201202885

PATIENT
  Age: 19 Year
  Sex: Male

DRUGS (5)
  1. METHADONE HCL [Concomitant]
  2. MORPHINE SULFATE [Suspect]
     Dosage: 740 MG, QD
  3. XANAX [Concomitant]
  4. OXYCODONE HCL [Concomitant]
  5. HYDROMORPHONE HYDROCHLORIDE [Concomitant]

REACTIONS (1)
  - DEATH [None]
